FAERS Safety Report 21568404 (Version 1)
Quarter: 2022Q4

REPORT INFORMATION
  Report Type: Other
  Country: None (occurrence: JP)
  Receive Date: 20221108
  Receipt Date: 20221108
  Transmission Date: 20230113
  Serious: Yes (Death)
  Sender: FDA-Public Use
  Company Number: JP-B.Braun Medical Inc.-2134649

PATIENT
  Age: 6 Year

DRUGS (2)
  1. ACETAMINOPHEN [Suspect]
     Active Substance: ACETAMINOPHEN
  2. CLARITHROMYCIN [Suspect]
     Active Substance: CLARITHROMYCIN

REACTIONS (4)
  - Stevens-Johnson syndrome [Fatal]
  - Pneumomediastinum [Fatal]
  - Subcutaneous emphysema [Fatal]
  - Acute respiratory distress syndrome [Fatal]
